FAERS Safety Report 6596904-4 (Version None)
Quarter: 2010Q1

REPORT INFORMATION
  Report Type: 
  Country: None (occurrence: None)
  Receive Date: 20100223
  Receipt Date: 20100212
  Transmission Date: 20100710
  Serious: Yes (Death, Other)
  Sender: FDA-Public Use
  Company Number: US-BAXTER-2009BH017007

PATIENT
  Age: 80 Year
  Sex: Female
  Weight: 74 kg

DRUGS (18)
  1. HEPARIN SODIUM INJECTION [Suspect]
     Indication: CATHETERISATION CARDIAC
     Route: 042
     Dates: start: 20071104, end: 20071104
  2. HEPARIN SODIUM INJECTION [Suspect]
     Indication: INTRAVENOUS CATHETER MANAGEMENT
     Route: 042
     Dates: start: 20071104, end: 20071104
  3. HEPARIN SODIUM INJECTION [Suspect]
     Indication: STENT PLACEMENT
     Route: 042
     Dates: start: 20071104, end: 20071104
  4. HEPARIN SODIUM INJECTION [Suspect]
     Route: 042
     Dates: start: 20071105, end: 20071105
  5. HEPARIN SODIUM INJECTION [Suspect]
     Route: 042
     Dates: start: 20071105, end: 20071105
  6. HEPARIN SODIUM INJECTION [Suspect]
     Route: 042
     Dates: start: 20071105, end: 20071105
  7. HEPARIN SODIUM INJECTION [Suspect]
     Route: 042
     Dates: start: 20071106, end: 20071106
  8. HEPARIN SODIUM INJECTION [Suspect]
     Route: 042
     Dates: start: 20071106, end: 20071106
  9. HEPARIN SODIUM INJECTION [Suspect]
     Route: 042
     Dates: start: 20071106, end: 20071106
  10. HEPARIN SODIUM INJECTION [Suspect]
     Route: 042
     Dates: start: 20071108, end: 20071108
  11. HEPARIN SODIUM INJECTION [Suspect]
     Route: 042
     Dates: start: 20071108, end: 20071108
  12. HEPARIN SODIUM INJECTION [Suspect]
     Route: 042
     Dates: start: 20071108, end: 20071108
  13. HEPARIN SODIUM INJECTION [Suspect]
     Route: 042
     Dates: start: 20071110, end: 20071110
  14. HEPARIN SODIUM INJECTION [Suspect]
     Route: 042
     Dates: start: 20071110, end: 20071110
  15. HEPARIN SODIUM INJECTION [Suspect]
     Route: 042
     Dates: start: 20071110, end: 20071110
  16. HEPARIN SODIUM INJECTION [Suspect]
     Route: 042
     Dates: start: 20071111, end: 20071111
  17. HEPARIN SODIUM INJECTION [Suspect]
     Route: 042
     Dates: start: 20071111, end: 20071111
  18. HEPARIN SODIUM INJECTION [Suspect]
     Route: 042
     Dates: start: 20071111, end: 20071111

REACTIONS (8)
  - COAGULOPATHY [None]
  - DIARRHOEA [None]
  - HAEMATOMA [None]
  - HYPOTENSION [None]
  - MENTAL DISORDER [None]
  - MULTI-ORGAN FAILURE [None]
  - RESPIRATORY FAILURE [None]
  - UNRESPONSIVE TO STIMULI [None]
